FAERS Safety Report 12857810 (Version 1)
Quarter: 2016Q4

REPORT INFORMATION
  Report Type: Spontaneous
  Country: US (occurrence: US)
  Receive Date: 20161018
  Receipt Date: 20161018
  Transmission Date: 20170207
  Serious: No
  Sender: FDA-Public Use
  Company Number: US-SA-2015SA151481

PATIENT
  Age: 25 Year
  Sex: Male

DRUGS (2)
  1. LEMTRADA [Suspect]
     Active Substance: ALEMTUZUMAB
     Route: 041
  2. LEMTRADA [Suspect]
     Active Substance: ALEMTUZUMAB
     Route: 041
     Dates: start: 2015

REACTIONS (38)
  - Alopecia [Not Recovered/Not Resolved]
  - Heart rate increased [Unknown]
  - Petechiae [Not Recovered/Not Resolved]
  - Feeling hot [Unknown]
  - Apathy [Unknown]
  - Pain [Not Recovered/Not Resolved]
  - Contusion [Unknown]
  - Vision blurred [Not Recovered/Not Resolved]
  - Body temperature fluctuation [Unknown]
  - Ill-defined disorder [Unknown]
  - Fatigue [Not Recovered/Not Resolved]
  - Headache [Not Recovered/Not Resolved]
  - Gingival disorder [Not Recovered/Not Resolved]
  - Fall [Unknown]
  - Hiccups [Unknown]
  - Feeling abnormal [Unknown]
  - Decreased activity [Unknown]
  - Asthenia [Unknown]
  - Flushing [Unknown]
  - Erythema [Not Recovered/Not Resolved]
  - Visual impairment [Unknown]
  - Dysarthria [Unknown]
  - Throat irritation [Unknown]
  - Restlessness [Unknown]
  - Somnolence [Unknown]
  - Nausea [Unknown]
  - Skin discolouration [Unknown]
  - Malaise [Unknown]
  - Feeling cold [Unknown]
  - Vertigo [Recovering/Resolving]
  - Gait disturbance [Unknown]
  - Rash pruritic [Unknown]
  - Vomiting [Unknown]
  - Hot flush [Unknown]
  - Bone pain [Not Recovered/Not Resolved]
  - Oscillopsia [Recovering/Resolving]
  - Dizziness [Recovering/Resolving]
  - Insomnia [Unknown]

NARRATIVE: CASE EVENT DATE: 2015
